FAERS Safety Report 9383093 (Version 2)
Quarter: 2014Q2

REPORT INFORMATION
  Report Type: Report from Study
  Country: BR (occurrence: BR)
  Receive Date: 20130704
  Receipt Date: 20140520
  Transmission Date: 20141212
  Serious: Yes (Other)
  Sender: FDA-Public Use
  Company Number: BR-ROCHE-1241585

PATIENT
  Age: 65 Year
  Sex: Female
  Weight: 79.8 kg

DRUGS (8)
  1. XOLAIR [Suspect]
     Indication: ASTHMA
     Route: 065
     Dates: start: 200712
  2. XOLAIR [Suspect]
     Route: 058
     Dates: start: 201207, end: 201207
  3. SERETIDE DISKUS [Suspect]
     Indication: BRONCHIAL DISORDER
     Dosage: 50/500 MICROGRAM
     Route: 065
     Dates: start: 200709, end: 200712
  4. AEROLIN [Suspect]
     Indication: PRODUCT USED FOR UNKNOWN INDICATION
     Route: 065
  5. MIFLASONE [Concomitant]
     Route: 065
     Dates: start: 201305
  6. BUDESONIDE [Concomitant]
  7. NAPRIX [Concomitant]
     Dosage: 5/12.5 MG
     Route: 048
     Dates: start: 2007
  8. VERAPAMIL [Concomitant]
     Route: 048

REACTIONS (12)
  - Osteoarthritis [Not Recovered/Not Resolved]
  - Asthmatic crisis [Unknown]
  - Malaise [Unknown]
  - Gait disturbance [Unknown]
  - Cough [Unknown]
  - Mycotic allergy [Unknown]
  - Gastritis [Not Recovered/Not Resolved]
  - Chest pain [Unknown]
  - Arthropod sting [Unknown]
  - Exostosis [Not Recovered/Not Resolved]
  - Burning sensation [Unknown]
  - Inflammation [Unknown]
